FAERS Safety Report 12086558 (Version 2)
Quarter: 2016Q1

REPORT INFORMATION
  Report Type: Spontaneous
  Country: US (occurrence: US)
  Receive Date: 20160217
  Receipt Date: 20160217
  Transmission Date: 20160526
  Serious: No
  Sender: FDA-Public Use
  Company Number: US-ALLERGAN-1504855US

PATIENT
  Age: 73 Year
  Sex: Female
  Weight: 66.21 kg

DRUGS (4)
  1. TYLENOL [Concomitant]
     Active Substance: ACETAMINOPHEN
     Indication: OSTEOARTHRITIS
  2. TRAMADOL. [Concomitant]
     Active Substance: TRAMADOL
     Indication: OSTEOARTHRITIS
  3. RESTASIS [Suspect]
     Active Substance: CYCLOSPORINE
     Indication: DRY EYE
     Dosage: 2 GTT, BID
     Route: 047
     Dates: start: 20150311
  4. ATENOLOL. [Concomitant]
     Active Substance: ATENOLOL
     Indication: BLOOD PRESSURE MEASUREMENT

REACTIONS (8)
  - Visual acuity reduced [Unknown]
  - Halo vision [Unknown]
  - Ocular hyperaemia [Not Recovered/Not Resolved]
  - Vision blurred [Recovering/Resolving]
  - Lacrimation increased [Unknown]
  - Eye irritation [Not Recovered/Not Resolved]
  - Drug ineffective [Unknown]
  - Eye pruritus [Not Recovered/Not Resolved]

NARRATIVE: CASE EVENT DATE: 201503
